FAERS Safety Report 11840161 (Version 1)
Quarter: 2015Q4

REPORT INFORMATION
  Report Type: Spontaneous
  Country: US (occurrence: None)
  Receive Date: 20151215
  Receipt Date: 20151215
  Transmission Date: 20160305
  Serious: No
  Sender: FDA-Public Use
  Company Number: None

PATIENT
  Age: 41 Year
  Sex: Female
  Weight: 93.44 kg

DRUGS (6)
  1. LYRICA [Concomitant]
     Active Substance: PREGABALIN
  2. MORPHINE SULFATE. [Suspect]
     Active Substance: MORPHINE SULFATE
     Indication: PAIN MANAGEMENT
     Dosage: 1 PILL/EVERY 8 HOURS, AS NEEDED, TAKEN BY MOUTH
     Route: 048
     Dates: start: 20151110, end: 20151214
  3. LEVOTHYROXINE. [Concomitant]
     Active Substance: LEVOTHYROXINE
  4. SKELAXIN [Concomitant]
     Active Substance: METAXALONE
  5. XARELTO [Concomitant]
     Active Substance: RIVAROXABAN
  6. HYDROMORPHONE [Concomitant]
     Active Substance: HYDROMORPHONE

REACTIONS (3)
  - Muscle spasms [None]
  - Seizure [None]
  - Muscle twitching [None]

NARRATIVE: CASE EVENT DATE: 20151116
